FAERS Safety Report 25175623 (Version 1)
Quarter: 2025Q2

REPORT INFORMATION
  Report Type: Spontaneous
  Country: US (occurrence: US)
  Receive Date: 20250408
  Receipt Date: 20250408
  Transmission Date: 20250717
  Serious: No
  Sender: MADRIGAL PHARMACEUTICALS
  Company Number: US-MADRIGAL PHARMACEUTICALS, INC-2025REZ1178

PATIENT

DRUGS (8)
  1. REZDIFFRA [Suspect]
     Active Substance: RESMETIROM
     Indication: Hepatic steatosis
     Dosage: 80 MILLIGRAM, QD
     Route: 048
     Dates: start: 20250104, end: 20250115
  2. REZDIFFRA [Suspect]
     Active Substance: RESMETIROM
     Indication: Metabolic dysfunction-associated steatohepatitis
  3. VITAMIN B12 [Concomitant]
     Active Substance: CYANOCOBALAMIN
  4. CYMBALTA [Concomitant]
     Active Substance: DULOXETINE HYDROCHLORIDE
  5. NEURONTIN [Concomitant]
     Active Substance: GABAPENTIN
  6. MOTRIN [Concomitant]
     Active Substance: IBUPROFEN
  7. NIZORAL [Concomitant]
     Active Substance: KETOCONAZOLE
  8. TRAZODONE [Concomitant]
     Active Substance: TRAZODONE HYDROCHLORIDE

REACTIONS (1)
  - Rash pruritic [Recovered/Resolved]

NARRATIVE: CASE EVENT DATE: 20250114
